FAERS Safety Report 7079106-7 (Version None)
Quarter: 2010Q4

REPORT INFORMATION
  Report Type: 
  Country: None (occurrence: None)
  Receive Date: 20101102
  Receipt Date: 20101029
  Transmission Date: 20110411
  Serious: Yes (Hospitalization, Congenital Anomaly)
  Sender: FDA-Public Use
  Company Number: A0748189A

PATIENT
  Sex: Female

DRUGS (13)
  1. PAXIL [Suspect]
     Dosage: 20MG PER DAY
     Dates: start: 19980101, end: 20031101
  2. AMOXICILLIN [Concomitant]
     Dates: start: 20030429
  3. PRENATAL VITAMINS [Concomitant]
  4. ALLEGRA [Concomitant]
     Dates: start: 20030716
  5. MAGNESIUM [Concomitant]
     Route: 042
     Dates: start: 20031101
  6. FLAX SEED [Concomitant]
  7. FENUGREEK [Concomitant]
  8. FISH OIL [Concomitant]
  9. MILK THISTLE [Concomitant]
  10. ZYRTEC [Concomitant]
  11. LASIX [Concomitant]
  12. POTASSIUM CHLORIDE [Concomitant]
  13. FLONASE [Concomitant]

REACTIONS (5)
  - ANAL ATRESIA [None]
  - APPENDIX DISORDER [None]
  - DRUG EXPOSURE DURING PREGNANCY [None]
  - DYSPEPSIA [None]
  - GASTROSCHISIS [None]
